FAERS Safety Report 4514318-5 (Version None)
Quarter: 2004Q4

REPORT INFORMATION
  Report Type: 
  Country: None (occurrence: None)
  Receive Date: 20040928
  Receipt Date: 20040624
  Transmission Date: 20050328
  Serious: No
  Sender: FDA-Public Use
  Company Number: 04P-163-0264740-00

PATIENT
  Age: 76 Year
  Sex: Female
  Weight: 72.5755 kg

DRUGS (7)
  1. HUMIRA [Suspect]
     Indication: RHEUMATOID ARTHRITIS
     Dosage: 40 MG, 1 IN 2 WK, SUBCUTANEOUS
     Route: 058
     Dates: start: 20040614
  2. PREDNISONE [Concomitant]
  3. HYDROXYCHLOROQUINE PHOSPHATE [Concomitant]
  4. MONTELUKAST SODIUM [Concomitant]
  5. RAMIPRIL [Concomitant]
  6. AMLODIPINE BESYLATE [Concomitant]
  7. OXYCOCET [Concomitant]

REACTIONS (2)
  - PRODUCTIVE COUGH [None]
  - SINUSITIS [None]
